FAERS Safety Report 25427809 (Version 1)
Quarter: 2025Q2

REPORT INFORMATION
  Report Type: Spontaneous
  Country: FR (occurrence: FR)
  Receive Date: 20250612
  Receipt Date: 20250612
  Transmission Date: 20250716
  Serious: Yes (Hospitalization)
  Sender: PFIZER
  Company Number: None

PATIENT
  Age: 54 Year
  Sex: Male
  Weight: 90 kg

DRUGS (11)
  1. LINEZOLID [Suspect]
     Active Substance: LINEZOLID
     Indication: Bacterial infection
     Dosage: FREQ:12 H
     Route: 048
     Dates: start: 20250501, end: 20250515
  2. LINEZOLID [Suspect]
     Active Substance: LINEZOLID
     Indication: Lung abscess
  3. LINEZOLID [Suspect]
     Active Substance: LINEZOLID
     Indication: Inflammation
  4. MEROPENEM [Suspect]
     Active Substance: MEROPENEM
     Indication: Bacterial infection
     Dosage: FREQ:8 H
     Route: 042
     Dates: start: 20250501
  5. MEROPENEM [Suspect]
     Active Substance: MEROPENEM
     Indication: Lung abscess
  6. ATARAX [Concomitant]
     Active Substance: HYDROXYZINE HYDROCHLORIDE
     Indication: Anxiety
     Dosage: 25 MG, 1X/DAY
     Route: 048
     Dates: start: 20250502, end: 20250507
  7. CLINDAMYCIN [Concomitant]
     Active Substance: CLINDAMYCIN
  8. KEPPRA [Concomitant]
     Active Substance: LEVETIRACETAM
     Indication: Epilepsy
     Dosage: FREQ:12 H
     Route: 048
  9. OXAZEPAM [Concomitant]
     Active Substance: OXAZEPAM
     Indication: Anxiety
     Route: 048
     Dates: start: 20250502
  10. PREDNISOLONE SODIUM METAZOATE [Concomitant]
     Active Substance: PREDNISOLONE SODIUM METAZOATE
     Indication: Small cell lung cancer metastatic
     Dosage: 90 MG, 1X/DAY
     Route: 048
     Dates: end: 20250514
  11. PREDNISOLONE SODIUM METAZOATE [Concomitant]
     Active Substance: PREDNISOLONE SODIUM METAZOATE
     Dosage: 80 MG, 1X/DAY
     Route: 048
     Dates: start: 20250514

REACTIONS (2)
  - Generalised tonic-clonic seizure [Recovered/Resolved]
  - Condition aggravated [Recovered/Resolved]

NARRATIVE: CASE EVENT DATE: 20250513
